FAERS Safety Report 10073879 (Version 1)
Quarter: 2014Q2

REPORT INFORMATION
  Report Type: Spontaneous
  Country: US (occurrence: US)
  Receive Date: 20140412
  Receipt Date: 20140412
  Transmission Date: 20141212
  Serious: No
  Sender: FDA-Public Use
  Company Number: US-009507513-1404USA001437

PATIENT
  Age: 73 Year
  Sex: Male

DRUGS (2)
  1. DULERA [Suspect]
     Indication: ASTHMA
     Dosage: 1 TO 2 INHALATIONS TWICE DAILY
     Route: 055
     Dates: start: 201310
  2. STUDY DRUG (UNSPECIFIED) [Suspect]

REACTIONS (1)
  - Asthma [Recovered/Resolved]
